FAERS Safety Report 11420954 (Version 3)
Quarter: 2015Q3

REPORT INFORMATION
  Report Type: Spontaneous
  Country: US (occurrence: US)
  Receive Date: 20150826
  Receipt Date: 20150929
  Transmission Date: 20151125
  Serious: No
  Sender: FDA-Public Use
  Company Number: US-PFIZER INC-2015281892

PATIENT
  Age: 39 Year
  Sex: Male

DRUGS (4)
  1. ANADROL [Concomitant]
     Active Substance: OXYMETHOLONE
     Indication: ANAEMIA
     Dosage: 50-50 1 CAP, 3X/DAY
     Dates: start: 201409
  2. NORVIR [Concomitant]
     Active Substance: RITONAVIR
     Indication: HIV INFECTION
     Dosage: 100 MG, 1X/DAY
     Dates: start: 201409
  3. DEPO-TESTOSTERONE [Suspect]
     Active Substance: TESTOSTERONE CYPIONATE
     Dosage: 200 MG, WEEKLY (200MG/ML 1 CC 1 MICROGRAM ONCE A WEEK)
     Route: 030
     Dates: start: 201409
  4. PREZISTA [Concomitant]
     Active Substance: DARUNAVIR ETHANOLATE
     Indication: HIV INFECTION
     Dosage: 800 MG, 1X/DAY
     Dates: start: 201409

REACTIONS (2)
  - Liquid product physical issue [Not Recovered/Not Resolved]
  - Injection site pain [Recovered/Resolved]
